FAERS Safety Report 8966607 (Version 1)
Quarter: 2012Q4

REPORT INFORMATION
  Report Type: Report from Study
  Country: SE (occurrence: SE)
  Receive Date: 20121214
  Receipt Date: 20121214
  Transmission Date: 20130627
  Serious: Yes (Death)
  Sender: FDA-Public Use
  Company Number: SE-BAXTER-2012BAX026541

PATIENT
  Age: 63 Year
  Sex: Male

DRUGS (11)
  1. SENDOXAN [Suspect]
     Indication: NON-HODGKIN^S LYMPHOMA
     Route: 065
     Dates: start: 2005
  2. SENDOXAN [Suspect]
     Route: 065
     Dates: start: 2006
  3. SENDOXAN [Suspect]
     Route: 065
     Dates: start: 200612
  4. RITUXIMAB [Suspect]
     Indication: NON-HODGKIN^S LYMPHOMA
     Route: 065
     Dates: start: 2003
  5. RITUXIMAB [Suspect]
     Route: 065
     Dates: end: 200609
  6. RITUXIMAB [Suspect]
     Route: 065
     Dates: start: 2006
  7. RITUXIMAB [Suspect]
     Route: 065
     Dates: start: 200612
  8. FLUDARABINE [Suspect]
     Indication: NON-HODGKIN^S LYMPHOMA
     Route: 065
     Dates: start: 2005
  9. VINCRISTINE [Suspect]
     Indication: NON-HODGKIN^S LYMPHOMA
     Route: 065
     Dates: start: 200612
  10. PREDNISONE [Suspect]
     Indication: NON-HODGKIN^S LYMPHOMA
     Route: 065
  11. DOXORUBICIN [Suspect]
     Indication: NON-HODGKIN^S LYMPHOMA
     Route: 065
     Dates: start: 200612

REACTIONS (2)
  - Myelodysplastic syndrome [Fatal]
  - Multi-organ failure [Fatal]
